FAERS Safety Report 24680620 (Version 2)
Quarter: 2024Q4

REPORT INFORMATION
  Report Type: Spontaneous
  Country: SI (occurrence: SI)
  Receive Date: 20241129
  Receipt Date: 20241203
  Transmission Date: 20250115
  Serious: Yes (Death, Other)
  Sender: IPSEN BIOPHARMACEUTICALS, INC.
  Company Number: SI-IPSEN Group, Research and Development-2024-24412

PATIENT
  Age: 68 Year
  Sex: Female
  Weight: 73 kg

DRUGS (7)
  1. LANREOTIDE ACETATE [Suspect]
     Active Substance: LANREOTIDE ACETATE
     Indication: Gastrointestinal neuroendocrine tumour
     Route: 065
     Dates: start: 201702, end: 202201
  2. GLICLAZIDE [Concomitant]
     Active Substance: GLICLAZIDE
  3. LINAGLIPTIN [Concomitant]
     Active Substance: LINAGLIPTIN
  4. FLUVASTATIN [Concomitant]
     Active Substance: FLUVASTATIN SODIUM
  5. PERINDOPRIL [Concomitant]
     Active Substance: PERINDOPRIL
  6. BISOPROLOL [Concomitant]
     Active Substance: BISOPROLOL
  7. ASPIRIN [Concomitant]
     Active Substance: ASPIRIN

REACTIONS (14)
  - Cardiac failure [Fatal]
  - Pneumonia [Fatal]
  - Cachexia [Unknown]
  - Pancreatic failure [Unknown]
  - Myocardial infarction [Unknown]
  - Metastases to lung [Unknown]
  - Coronary artery disease [Unknown]
  - Systolic dysfunction [Unknown]
  - Blood glucose abnormal [Recovered/Resolved]
  - Leukocytosis [Unknown]
  - C-reactive protein increased [Recovering/Resolving]
  - Cough [Recovered/Resolved]
  - Vitamin D deficiency [Unknown]
  - Cardiovascular disorder [Unknown]

NARRATIVE: CASE EVENT DATE: 20170401
